FAERS Safety Report 8360732-X (Version None)
Quarter: 2012Q1

REPORT INFORMATION
  Report Type: 
  Country: None (occurrence: None)
  Receive Date: 20120323
  Receipt Date: 20110526
  Transmission Date: 20120608
  Serious: Yes (Hospitalization, Other)
  Sender: FDA-Public Use
  Company Number: 163-21880-11012867

PATIENT
  Age: 68 Year
  Sex: Female
  Weight: 102.2 kg

DRUGS (3)
  1. REVLIMID [Suspect]
     Indication: MULTIPLE MYELOMA
     Dosage: 25 MG, DAILY FOR 21 DAYS, PO
     Route: 048
     Dates: start: 20101230
  2. BLOOD TRANSFUSION (BLOOD CELLS, PACKED HUMAN) [Concomitant]
  3. IMMUNE GLOBULIN (HUMAN) [Concomitant]

REACTIONS (13)
  - SWELLING FACE [None]
  - HEADACHE [None]
  - CHEST PAIN [None]
  - INFLUENZA [None]
  - INFLUENZA LIKE ILLNESS [None]
  - OEDEMA PERIPHERAL [None]
  - VISION BLURRED [None]
  - BLINDNESS TRANSIENT [None]
  - DISORIENTATION [None]
  - BLOOD COUNT ABNORMAL [None]
  - PNEUMONIA [None]
  - PRURITUS [None]
  - FATIGUE [None]
